FAERS Safety Report 8588635-6 (Version None)
Quarter: 2012Q3

REPORT INFORMATION
  Report Type: 
  Country: None (occurrence: None)
  Receive Date: 20120731
  Receipt Date: 20120720
  Transmission Date: 20120928
  Serious: Yes (Life-Threatening, Hospitalization)
  Sender: FDA-Public Use
  Company Number: DSA_57529_2012

PATIENT
  Sex: Female

DRUGS (8)
  1. FLAGYL [Suspect]
     Indication: PRODUCT USED FOR UNKNOWN INDICATION
     Dosage: 500 MG TID ORAL
     Route: 048
     Dates: start: 20120412, end: 20120424
  2. TRAMADOL HCL [Concomitant]
  3. NEXIUM [Concomitant]
  4. TAMIFLU [Suspect]
     Indication: PRODUCT USED FOR UNKNOWN INDICATION
     Dosage: 75 MG BID ORAL
     Route: 048
  5. OFLOXACIN [Suspect]
     Indication: PRODUCT USED FOR UNKNOWN INDICATION
     Dosage: 200 MG BID INTRAVENOUS (NOT OTHERWISE SPECIFIED)
     Dates: start: 20120414, end: 20120418
  6. LOVENOX [Concomitant]
  7. CEFTRIAXON [Suspect]
     Indication: PRODUCT USED FOR UNKNOWN INDICATION
     Dosage: 1 G QD INTRAVENOUS (NOT OTHERWISE SPECIFIED)
     Route: 042
     Dates: start: 20120414, end: 20120418
  8. DOXYCYCLINE HCL [Concomitant]

REACTIONS (8)
  - RHABDOMYOLYSIS [None]
  - STRONGYLOIDIASIS [None]
  - ABDOMINAL PAIN UPPER [None]
  - ARTHRALGIA [None]
  - PYREXIA [None]
  - HEADACHE [None]
  - COUGH [None]
  - DENGUE FEVER [None]
